FAERS Safety Report 6945465-6 (Version None)
Quarter: 2010Q3

REPORT INFORMATION
  Report Type: 
  Country: None (occurrence: None)
  Receive Date: 20100827
  Receipt Date: 20100817
  Transmission Date: 20110219
  Serious: Yes (Hospitalization)
  Sender: FDA-Public Use
  Company Number: US-ROCHE-722096

PATIENT
  Age: 64 Year
  Sex: Male
  Weight: 71.7 kg

DRUGS (2)
  1. BLINDED BEVACIZUMAB [Suspect]
     Indication: GLIOBLASTOMA MULTIFORME
     Dosage: LAST DOSE PRIOR TO SAE ON 16 JUNE 2010, DAY 1 AND DAY 15, TDD THIS COURSE: 1490 MG
     Route: 042
     Dates: start: 20100507
  2. TEMOZOLOMIDE [Suspect]
     Indication: GLIOBLASTOMA MULTIFORME
     Dosage: LAST DOSE PRIOR TO SAE ON 06 JULY 2010, TDD IN CURSE: 1900 MG, ON DAY 1 AND DAY 5.
     Route: 042
     Dates: start: 20100507

REACTIONS (5)
  - COUGH [None]
  - DECREASED APPETITE [None]
  - DIZZINESS [None]
  - DYSPHAGIA [None]
  - WEIGHT DECREASED [None]
